FAERS Safety Report 8965189 (Version 5)
Quarter: 2013Q1

REPORT INFORMATION
  Report Type: Spontaneous
  Country: BR (occurrence: BR)
  Receive Date: 20121214
  Receipt Date: 20130312
  Transmission Date: 20140127
  Serious: Yes (Other)
  Sender: FDA-Public Use
  Company Number: PHHY2012BR115368

PATIENT
  Sex: Male
  Weight: 108 kg

DRUGS (2)
  1. FORASEQ [Suspect]
     Indication: BRONCHITIS
     Dosage: 1 DF, UP TO 4 TIMES DAILY
  2. FORASEQ [Suspect]
     Dosage: 1 DF, ONLY WHEN HE EXPERIENCED EPISODES OF BRONCHITIS
     Dates: start: 20121203

REACTIONS (4)
  - Cataract [Not Recovered/Not Resolved]
  - Incorrect dose administered [Unknown]
  - Bronchitis [Recovering/Resolving]
  - Wrong technique in drug usage process [Unknown]
